FAERS Safety Report 24535451 (Version 1)
Quarter: 2024Q4

REPORT INFORMATION
  Report Type: Spontaneous
  Country: SE (occurrence: SE)
  Receive Date: 20241022
  Receipt Date: 20241022
  Transmission Date: 20250115
  Serious: Yes (Other)
  Sender: BRAEBURN PHARMACEUTICALS
  Company Number: SE-CAMURUS AB-SE-CAM-24-01297

PATIENT
  Age: 69 Year
  Sex: Female

DRUGS (3)
  1. BUPRENORPHINE [Suspect]
     Active Substance: BUPRENORPHINE
     Indication: Product used for unknown indication
     Dosage: 160 MILLIGRAM
     Route: 065
     Dates: start: 20240819
  2. ELIQUIS [Concomitant]
     Active Substance: APIXABAN
     Indication: Product used for unknown indication
     Dosage: UNK
     Route: 065
  3. GABAPENTIN [Concomitant]
     Active Substance: GABAPENTIN
     Indication: Product used for unknown indication
     Dosage: 600 MILLIGRAM, TID
     Route: 065

REACTIONS (5)
  - Depressed level of consciousness [Recovered/Resolved]
  - Genital pain [Recovered/Resolved]
  - Pain in extremity [Recovered/Resolved]
  - Dizziness [Recovered/Resolved]
  - Somnolence [Recovered/Resolved]
